FAERS Safety Report 4844900-7 (Version None)
Quarter: 2005Q4

REPORT INFORMATION
  Report Type: 
  Country: None (occurrence: None)
  Receive Date: 20051128
  Receipt Date: 20051115
  Transmission Date: 20060501
  Serious: Yes (Other)
  Sender: FDA-Public Use
  Company Number: 2005158157

PATIENT
  Age: 75 Year
  Sex: Male

DRUGS (6)
  1. VFEND [Suspect]
     Indication: MYCOTIC CORNEAL ULCER
     Dosage: 6 MG/KG, INTRAVENOUS
     Route: 042
     Dates: end: 20051101
  2. FLUCONAZOLE [Suspect]
     Indication: MYCOTIC CORNEAL ULCER
     Dosage: INTRAOCULAR
     Route: 031
  3. PRODIF (FOSFLUCONAZOLE) [Suspect]
     Indication: MYCOTIC CORNEAL ULCER
     Dosage: 504.5 MG, INTRAVENOUS
     Route: 042
  4. FUNGUARD (MICAFUNGIN SODIUM) (MICAFUNGIN) [Suspect]
     Indication: MYCOTIC CORNEAL ULCER
     Dosage: INTRAOCULAR
     Route: 031
  5. GATIFLO (GATIFLOXACIN HYDRATE) [Suspect]
     Indication: ULCERATIVE KERATITIS
     Dosage: INTRAOCULAR
     Route: 031
  6. PIMARICIN [Suspect]
     Indication: MYCOTIC CORNEAL ULCER
     Dosage: INTRAOCULAR
     Route: 031

REACTIONS (3)
  - CORNEAL EPITHELIUM DISORDER [None]
  - GAMMA-GLUTAMYLTRANSFERASE INCREASED [None]
  - MALAISE [None]
